FAERS Safety Report 22150602 (Version 1)
Quarter: 2023Q1

REPORT INFORMATION
  Report Type: Spontaneous
  Country: JP (occurrence: JP)
  Receive Date: 20230329
  Receipt Date: 20230329
  Transmission Date: 20230417
  Serious: Yes (Disabling)
  Sender: FDA-Public Use
  Company Number: JP-ELI_LILLY_AND_COMPANY-JP202303009963

PATIENT
  Age: 47 Year
  Sex: Male

DRUGS (5)
  1. VERZENIO [Suspect]
     Active Substance: ABEMACICLIB
     Indication: Breast cancer stage IV
     Dosage: 150 MG, BID
     Route: 048
     Dates: start: 20210720, end: 20211110
  2. VERZENIO [Suspect]
     Active Substance: ABEMACICLIB
     Dosage: 100 MG, BID
     Route: 048
     Dates: start: 20211111
  3. FASLODEX [Suspect]
     Active Substance: FULVESTRANT
     Indication: Breast cancer stage IV
     Dosage: 500 MG, DAILY
     Route: 065
     Dates: start: 20210720
  4. MIYA-BM [Suspect]
     Active Substance: CLOSTRIDIUM BUTYRICUM SPORES STRAIN M-55
     Indication: Product used for unknown indication
     Dosage: 3 DOSAGE FORM, DAILY
     Route: 048
     Dates: start: 20210720
  5. HERBALS [Suspect]
     Active Substance: HERBALS
     Indication: Product used for unknown indication
     Dosage: 7.5 MG, UNKNOWN
     Route: 065
     Dates: start: 20220210

REACTIONS (2)
  - Retinal vein occlusion [Not Recovered/Not Resolved]
  - Retinal vein occlusion [Not Recovered/Not Resolved]

NARRATIVE: CASE EVENT DATE: 20221101
